FAERS Safety Report 24165516 (Version 4)
Quarter: 2024Q3

REPORT INFORMATION
  Report Type: Spontaneous
  Country: TR (occurrence: TR)
  Receive Date: 20240802
  Receipt Date: 20240912
  Transmission Date: 20241016
  Serious: Yes (Hospitalization, Other)
  Sender: SANOFI AVENTIS
  Company Number: TR-SA-SAC20240729001504

PATIENT
  Age: 6 Month
  Sex: Male
  Weight: 9.6 kg

DRUGS (5)
  1. MYOZYME [Suspect]
     Active Substance: ALGLUCOSIDASE ALFA
     Indication: Glycogen storage disease type II
     Dosage: 500 MG (50 MG/KG), QOW
     Route: 042
     Dates: start: 20230816
  2. MYOZYME [Suspect]
     Active Substance: ALGLUCOSIDASE ALFA
     Dosage: 500 MG (50 MG/KG), QW
     Route: 042
     Dates: end: 20240717
  3. MYOZYME [Suspect]
     Active Substance: ALGLUCOSIDASE ALFA
     Dosage: 500 MG (50 MG/KG), QW
     Route: 042
     Dates: start: 20240717, end: 2024
  4. MYOZYME [Suspect]
     Active Substance: ALGLUCOSIDASE ALFA
     Dosage: 25 MG/KG, QOW
     Route: 042
     Dates: start: 2024
  5. CETRYN [Concomitant]
     Indication: Premedication
     Dosage: 2.5 MG, QD
     Route: 048
     Dates: start: 20230815

REACTIONS (8)
  - Contusion [Recovered/Resolved]
  - Infection [Unknown]
  - Cyanosis [Recovered/Resolved]
  - Cardio-respiratory arrest [Recovered/Resolved]
  - Cough [Recovered/Resolved]
  - Incorrect dose administered [Unknown]
  - Inappropriate schedule of product administration [Unknown]
  - Off label use [Unknown]

NARRATIVE: CASE EVENT DATE: 20230816
